FAERS Safety Report 16495505 (Version 1)
Quarter: 2019Q2

REPORT INFORMATION
  Report Type: Spontaneous
  Country: US (occurrence: US)
  Receive Date: 20190628
  Receipt Date: 20190628
  Transmission Date: 20190711
  Serious: No
  Sender: FDA-Public Use
  Company Number: US-PFIZER INC-2019262612

PATIENT
  Sex: Female

DRUGS (9)
  1. MAGNESIUM SULFATE. [Suspect]
     Active Substance: MAGNESIUM SULFATE
     Dosage: UNK
  2. VITAMIN A [RETINOL] [Suspect]
     Active Substance: RETINOL
     Dosage: UNK
  3. VITAMIN B12 [Suspect]
     Active Substance: CYANOCOBALAMIN
     Dosage: UNK
  4. FOLIC ACID. [Suspect]
     Active Substance: FOLIC ACID
     Dosage: UNK
  5. POTASSIUM CHLORIDE. [Suspect]
     Active Substance: POTASSIUM CHLORIDE
     Dosage: UNK
  6. ZINC CHLORIDE [Suspect]
     Active Substance: ZINC CHLORIDE
     Dosage: UNK
  7. VITAMIN D [COLECALCIFEROL] [Suspect]
     Active Substance: CHOLECALCIFEROL
     Dosage: UNK
  8. CALCIUM [Suspect]
     Active Substance: CALCIUM
     Dosage: UNK
  9. BIOTIN [Suspect]
     Active Substance: BIOTIN
     Dosage: UNK

REACTIONS (2)
  - Drug interaction [Unknown]
  - Contraindicated product prescribed [Unknown]
